FAERS Safety Report 16583911 (Version 1)
Quarter: 2019Q3

REPORT INFORMATION
  Report Type: Spontaneous
  Country: RO (occurrence: RO)
  Receive Date: 20190717
  Receipt Date: 20190717
  Transmission Date: 20191004
  Serious: Yes (Hospitalization, Other)
  Sender: FDA-Public Use
  Company Number: RO-TEVA-2019-RO-1079548

PATIENT
  Sex: Female

DRUGS (1)
  1. METHOTREXATE. [Suspect]
     Active Substance: METHOTREXATE
     Indication: RHEUMATOID ARTHRITIS
     Dosage: 20 MILLIGRAM DAILY;
     Route: 065
     Dates: start: 20141222

REACTIONS (8)
  - Eczema infected [Recovered/Resolved]
  - Pancytopenia [Recovered/Resolved]
  - Eczema [Recovered/Resolved]
  - General physical health deterioration [Recovered/Resolved]
  - Stomatitis [Recovered/Resolved]
  - Overdose [Unknown]
  - Product prescribing error [Unknown]
  - Product dispensing error [Unknown]
